FAERS Safety Report 10937008 (Version 2)
Quarter: 2015Q2

REPORT INFORMATION
  Report Type: Spontaneous
  Country: US (occurrence: US)
  Receive Date: 20150321
  Receipt Date: 20150525
  Transmission Date: 20150821
  Serious: No
  Sender: FDA-Public Use
  Company Number: US-JNJFOC-20130708296

PATIENT
  Age: 67 Year
  Sex: Female

DRUGS (5)
  1. ASPIRIN. [Concomitant]
     Active Substance: ASPIRIN
     Indication: PRODUCT USED FOR UNKNOWN INDICATION
     Route: 065
  2. ZONISAMIDE. [Suspect]
     Active Substance: ZONISAMIDE
     Indication: ELECTROENCEPHALOGRAM ABNORMAL
     Route: 048
     Dates: start: 201306, end: 201306
  3. ZONISAMIDE. [Suspect]
     Active Substance: ZONISAMIDE
     Indication: ELECTROENCEPHALOGRAM ABNORMAL
     Route: 048
     Dates: start: 201307
  4. TOPAMAX [Suspect]
     Active Substance: TOPIRAMATE
     Indication: ELECTROENCEPHALOGRAM ABNORMAL
     Route: 048
     Dates: end: 2013
  5. TUMS [Concomitant]
     Active Substance: CALCIUM CARBONATE
     Indication: PAIN
     Route: 065

REACTIONS (2)
  - Amnesia [Unknown]
  - Chest pain [Not Recovered/Not Resolved]

NARRATIVE: CASE EVENT DATE: 201306
